FAERS Safety Report 13926853 (Version 1)
Quarter: 2017Q3

REPORT INFORMATION
  Report Type: Spontaneous
  Country: US (occurrence: US)
  Receive Date: 20170901
  Receipt Date: 20170901
  Transmission Date: 20171127
  Serious: Yes (Other)
  Sender: FDA-Public Use
  Company Number: US-TEVA-802541USA

PATIENT
  Sex: Female

DRUGS (1)
  1. PARAGARD T 380A [Suspect]
     Active Substance: COPPER
     Route: 015

REACTIONS (7)
  - Muscle spasms [Unknown]
  - Pregnancy with contraceptive device [Unknown]
  - Live birth [Unknown]
  - Caesarean section [Unknown]
  - Device breakage [Unknown]
  - Discomfort [Unknown]
  - Embedded device [Unknown]
